FAERS Safety Report 9968468 (Version 1)
Quarter: 2014Q1

REPORT INFORMATION
  Report Type: Report from Study
  Country: US (occurrence: US)
  Receive Date: 20140306
  Receipt Date: 20140306
  Transmission Date: 20141002
  Serious: No
  Sender: FDA-Public Use
  Company Number: US-ABBVIE-13P-163-1145659-00

PATIENT
  Age: 74 Year
  Sex: Female

DRUGS (11)
  1. HUMIRA [Suspect]
     Indication: CROHN^S DISEASE
     Dates: start: 20130829, end: 20130829
  2. HUMIRA [Suspect]
     Dates: start: 20130912, end: 20130912
  3. ATENOLOL [Concomitant]
     Indication: PALPITATIONS
     Dosage: 25 MG DAILY
  4. AMITRIPTYLINE [Concomitant]
     Indication: GASTRIC DISORDER
     Dosage: AT BEDTIME
  5. OMEPRAZOLE [Concomitant]
     Indication: GASTROOESOPHAGEAL REFLUX DISEASE
     Dosage: 20 MG DAILY
  6. SIMVASTATIN [Concomitant]
     Indication: BLOOD TRIGLYCERIDES INCREASED
     Dosage: 10 MG DAILY
  7. FOLIC ACID [Concomitant]
     Indication: PRODUCT USED FOR UNKNOWN INDICATION
     Dosage: 1 MG DAILY
  8. COLESTIPOL [Concomitant]
     Indication: DIARRHOEA
     Dosage: 1 GRAM DAILY
  9. APRISO [Concomitant]
     Indication: CROHN^S DISEASE
     Dosage: 0.75 MG (2 TABLETS) DAILY
  10. ASPIRIN [Concomitant]
     Indication: ANTICOAGULANT THERAPY
     Dosage: 81 MG DAILY
  11. VITAMIN B 12 [Concomitant]
     Indication: CROHN^S DISEASE
     Dosage: 1000 UNITS DAILY

REACTIONS (4)
  - Depression [Not Recovered/Not Resolved]
  - Nausea [Not Recovered/Not Resolved]
  - Diarrhoea [Not Recovered/Not Resolved]
  - Rash [Not Recovered/Not Resolved]
